FAERS Safety Report 8309169 (Version 4)
Quarter: 2013Q4

REPORT INFORMATION
  Report Type: Spontaneous
  Country: JP (occurrence: JP)
  Receive Date: 20111222
  Receipt Date: 20131216
  Transmission Date: 20140711
  Serious: Yes (Death, Hospitalization)
  Sender: FDA-Public Use
  Company Number: JP-ROCHE-1021722

PATIENT
  Age: 37 Year
  Sex: Female

DRUGS (5)
  1. ACTEMRA [Suspect]
     Indication: RHEUMATOID ARTHRITIS
     Dosage: DOSAGE IS UNCERTAIN.
     Route: 041
     Dates: start: 20110720, end: 20111018
  2. FLOMOX (JAPAN) [Suspect]
     Indication: PRODUCT USED FOR UNKNOWN INDICATION
     Dosage: DOSAGE IS UNCERTAIN.
     Route: 048
  3. PREDNISOLONE [Concomitant]
     Indication: RHEUMATOID ARTHRITIS
     Dosage: DOSAGE IS UNCERTAIN.
     Route: 048
     Dates: start: 20050917
  4. CELECOX [Concomitant]
     Indication: RHEUMATOID ARTHRITIS
     Route: 048
     Dates: start: 20100710
  5. LEVOGLUTAMIDE/SODIUM GUALENATE [Concomitant]
     Dosage: REPORTED AS - AZUCURENIN S
     Route: 048
     Dates: start: 20050917

REACTIONS (5)
  - Histiocytosis haematophagic [Fatal]
  - Hepatosplenic T-cell lymphoma [Fatal]
  - Ventricular fibrillation [Fatal]
  - Felty^s syndrome [Unknown]
  - Hepatitis fulminant [Unknown]
